FAERS Safety Report 5192972-5 (Version None)
Quarter: 2006Q4

REPORT INFORMATION
  Report Type: 
  Country: None (occurrence: None)
  Receive Date: 20061228
  Receipt Date: 20060329
  Transmission Date: 20070319
  Serious: No
  Sender: FDA-Public Use
  Company Number: US-GLAXOSMITHKLINE-A0599516A

PATIENT
  Age: 41 Year
  Sex: Female

DRUGS (2)
  1. FLONASE [Suspect]
     Dosage: 1SPR PER DAY
     Route: 045
     Dates: start: 20060328, end: 20060328
  2. NO CONCURRENT MEDICATION [Concomitant]

REACTIONS (4)
  - DYSPNOEA [None]
  - FEELING ABNORMAL [None]
  - FEELING JITTERY [None]
  - STOMACH DISCOMFORT [None]
